FAERS Safety Report 5728079-5 (Version None)
Quarter: 2008Q2

REPORT INFORMATION
  Report Type: 
  Country: None (occurrence: None)
  Receive Date: 20080505
  Receipt Date: 20080425
  Transmission Date: 20081010
  Serious: Yes (Other)
  Sender: FDA-Public Use
  Company Number: FR-PFIZER INC-2008037067

PATIENT
  Sex: Male
  Weight: 80 kg

DRUGS (10)
  1. AMLOR [Suspect]
     Route: 048
  2. ISONIAZID [Suspect]
     Route: 048
  3. RIFADIN [Suspect]
     Route: 048
  4. PYRAZINAMIDE [Suspect]
     Route: 048
  5. MYAMBUTOL [Suspect]
     Route: 048
  6. EFFEXOR [Suspect]
     Route: 048
  7. INSULIN [Suspect]
     Route: 058
  8. ENOXAPARIN SODIUM [Suspect]
     Route: 058
  9. RIFATER [Concomitant]
  10. ROCEPHIN [Concomitant]

REACTIONS (2)
  - HYPERBILIRUBINAEMIA [None]
  - TRANSAMINASES INCREASED [None]
